FAERS Safety Report 5196971-9 (Version None)
Quarter: 2006Q4

REPORT INFORMATION
  Report Type: 
  Country: None (occurrence: None)
  Receive Date: 20061227
  Receipt Date: 20061213
  Transmission Date: 20070319
  Serious: Yes (Death)
  Sender: FDA-Public Use
  Company Number: 2006SP008359

PATIENT
  Age: 57 Year
  Sex: Male
  Weight: 65 kg

DRUGS (21)
  1. PEG-INTRON [Suspect]
     Indication: HEPATITIS C
     Dosage: 100 MCG; QW; SC
     Route: 058
     Dates: start: 20060630, end: 20061103
  2. REBETOL [Suspect]
     Indication: HEPATITIS C
     Dosage: PO
     Route: 048
  3. ALLOPURINOL [Suspect]
     Indication: BLOOD URIC ACID DECREASED
     Dosage: 200 MG; QD; PO
     Route: 048
     Dates: start: 20061102, end: 20061107
  4. SHAKUYAKUKANZOUTOU (SHAKUYAKUKANZOUTOU) [Suspect]
     Indication: MUSCLE SPASMS
     Dosage: 2.5 GM; PRN; PO
     Route: 048
     Dates: start: 20061017, end: 20061026
  5. URSO [Concomitant]
  6. AMLODIPINE BESYLATE [Concomitant]
  7. ACINON [Concomitant]
  8. LICOTHION [Concomitant]
  9. PERIACTIN [Concomitant]
  10. TOUGHMAC E [Concomitant]
  11. LAC B [Concomitant]
  12. MICARDIS [Concomitant]
  13. ALLOID G [Concomitant]
  14. ALOSENN [Concomitant]
  15. LASIX [Concomitant]
  16. ALDACTAZIDE-A [Concomitant]
  17. MUCOSOLVAN [Concomitant]
  18. PAXIL [Concomitant]
  19. ASPARA-CA [Concomitant]
  20. LOXONIN [Concomitant]
  21. HALCION [Concomitant]

REACTIONS (10)
  - BACTERIAL INFECTION [None]
  - BLOOD URIC ACID INCREASED [None]
  - DISSEMINATED INTRAVASCULAR COAGULATION [None]
  - DYSPNOEA [None]
  - FUNGAL INFECTION [None]
  - INTERSTITIAL LUNG DISEASE [None]
  - MUSCLE SPASMS [None]
  - OXYGEN SATURATION DECREASED [None]
  - PYREXIA [None]
  - WHEEZING [None]
